FAERS Safety Report 8824711 (Version 1)
Quarter: 2012Q4

REPORT INFORMATION
  Report Type: 
  Country: FR (occurrence: FR)
  Receive Date: 20121004
  Receipt Date: 20121004
  Transmission Date: 20130627
  Serious: Yes (Life-Threatening)
  Sender: FDA-Public Use
  Company Number: FR-SANOFI-AVENTIS-2012SA070331

PATIENT
  Age: 71 Year
  Sex: Female

DRUGS (6)
  1. FUROSEMIDE [Suspect]
     Indication: DRUG USE FOR UNKNOWN INDICATION
     Route: 048
     Dates: end: 20120527
  2. METFORMIN [Suspect]
     Indication: DIABETES
     Route: 048
     Dates: end: 20120527
  3. DICLOFENAC SODIUM [Suspect]
     Indication: LUMBAR PAIN
     Route: 048
     Dates: start: 20120522, end: 20120527
  4. ATACAND [Suspect]
     Indication: DRUG USE FOR UNKNOWN INDICATION
     Route: 048
     Dates: end: 20120527
  5. INSULIN DETEMIR [Concomitant]
     Indication: DIABETES
  6. VICTOZA [Concomitant]
     Indication: DIABETES

REACTIONS (3)
  - Lactic acidosis [Recovered/Resolved]
  - Renal failure [Recovering/Resolving]
  - Anuria [Recovering/Resolving]
